FAERS Safety Report 8900010 (Version 6)
Quarter: 2013Q3

REPORT INFORMATION
  Report Type: Report from Study
  Country: FR (occurrence: FR)
  Receive Date: 20121109
  Receipt Date: 20130710
  Transmission Date: 20140515
  Serious: Yes (Other)
  Sender: FDA-Public Use
  Company Number: PHHY2012FR102721

PATIENT
  Sex: Female

DRUGS (1)
  1. GILENYA [Suspect]
     Indication: MULTIPLE SCLEROSIS
     Dosage: UNK UKN, UNK
     Route: 048
     Dates: start: 201207

REACTIONS (9)
  - Blindness [Unknown]
  - Musculoskeletal pain [Unknown]
  - Periarthritis [Unknown]
  - Vertigo [Unknown]
  - Fatigue [Recovering/Resolving]
  - Arthralgia [Unknown]
  - Dizziness [Unknown]
  - Eye pain [Unknown]
  - Multiple sclerosis relapse [Not Recovered/Not Resolved]
